FAERS Safety Report 15486960 (Version 26)
Quarter: 2023Q1

REPORT INFORMATION
  Report Type: Spontaneous
  Country: CA (occurrence: CA)
  Receive Date: 20181011
  Receipt Date: 20230215
  Transmission Date: 20230417
  Serious: Yes (Other)
  Sender: FDA-Public Use
  Company Number: CA-CELLTRION INC.-2018CA021910

PATIENT

DRUGS (55)
  1. INFLECTRA [Suspect]
     Active Substance: INFLIXIMAB-DYYB
     Indication: Crohn^s disease
     Dosage: 225 MG, 0, 2, 6 WEEKS, THEN EVERY 8 WEEKS
     Route: 042
     Dates: start: 20170705, end: 20180328
  2. INFLECTRA [Suspect]
     Active Substance: INFLIXIMAB-DYYB
     Dosage: 220 MG, EVERY 8 WEEKS
     Route: 042
     Dates: start: 20180523
  3. INFLECTRA [Suspect]
     Active Substance: INFLIXIMAB-DYYB
     Dosage: 220 MG, EVERY 8 WEEKS
     Route: 041
     Dates: start: 20180523, end: 20180801
  4. INFLECTRA [Suspect]
     Active Substance: INFLIXIMAB-DYYB
     Dosage: 220 MG, EVERY 8 WEEKS
     Route: 042
     Dates: start: 20180801
  5. INFLECTRA [Suspect]
     Active Substance: INFLIXIMAB-DYYB
     Dosage: 220 MG, EVERY 4 WEEKS
     Route: 042
     Dates: start: 20181015, end: 20181015
  6. INFLECTRA [Suspect]
     Active Substance: INFLIXIMAB-DYYB
     Dosage: 220 MG, EVERY 4 WEEKS
     Route: 041
     Dates: start: 20181015, end: 20190314
  7. INFLECTRA [Suspect]
     Active Substance: INFLIXIMAB-DYYB
     Dosage: 220 MG, EVERY 4 WEEKS
     Route: 042
     Dates: start: 20181116
  8. INFLECTRA [Suspect]
     Active Substance: INFLIXIMAB-DYYB
     Dosage: 220 MG, EVERY 4 WEEKS
     Route: 042
     Dates: start: 20181219
  9. INFLECTRA [Suspect]
     Active Substance: INFLIXIMAB-DYYB
     Dosage: 220 MG, EVERY 4 WEEKS
     Route: 042
     Dates: start: 20190116
  10. INFLECTRA [Suspect]
     Active Substance: INFLIXIMAB-DYYB
     Dosage: 220 MG, EVERY 4 WEEKS
     Route: 042
     Dates: start: 20190314
  11. INFLECTRA [Suspect]
     Active Substance: INFLIXIMAB-DYYB
     Dosage: 205 MG, EVERY 4 WEEKS
     Route: 042
     Dates: start: 20190410, end: 20211209
  12. INFLECTRA [Suspect]
     Active Substance: INFLIXIMAB-DYYB
     Dosage: 205 MG, EVERY 4 WEEKS
     Route: 042
     Dates: start: 20190508
  13. INFLECTRA [Suspect]
     Active Substance: INFLIXIMAB-DYYB
     Dosage: 205 MG, EVERY 4 WEEKS
     Route: 042
     Dates: start: 20190610, end: 20190610
  14. INFLECTRA [Suspect]
     Active Substance: INFLIXIMAB-DYYB
     Dosage: 205 MG, EVERY 4 WEEKS
     Route: 042
     Dates: start: 20191018
  15. INFLECTRA [Suspect]
     Active Substance: INFLIXIMAB-DYYB
     Dosage: 205 MG, EVERY 4 WEEKS
     Route: 042
     Dates: start: 20191114
  16. INFLECTRA [Suspect]
     Active Substance: INFLIXIMAB-DYYB
     Dosage: 205 MG, EVERY 4 WEEKS
     Route: 042
     Dates: start: 20191213
  17. INFLECTRA [Suspect]
     Active Substance: INFLIXIMAB-DYYB
     Dosage: 205 MG, EVERY 4 WEEKS
     Route: 042
     Dates: start: 20201113
  18. INFLECTRA [Suspect]
     Active Substance: INFLIXIMAB-DYYB
     Dosage: 205 MG, EVERY 4 WEEKS
     Route: 042
     Dates: start: 20201211
  19. INFLECTRA [Suspect]
     Active Substance: INFLIXIMAB-DYYB
     Dosage: 205 MG, EVERY 4 WEEKS
     Route: 042
     Dates: start: 20210205
  20. INFLECTRA [Suspect]
     Active Substance: INFLIXIMAB-DYYB
     Dosage: 205 MG, EVERY 4 WEEKS
     Route: 042
     Dates: start: 20210305
  21. INFLECTRA [Suspect]
     Active Substance: INFLIXIMAB-DYYB
     Dosage: 205 MG, EVERY 4 WEEKS
     Route: 042
     Dates: start: 20210528
  22. INFLECTRA [Suspect]
     Active Substance: INFLIXIMAB-DYYB
     Dosage: 205 MG, EVERY 4 WEEKS
     Route: 042
     Dates: start: 20210625
  23. INFLECTRA [Suspect]
     Active Substance: INFLIXIMAB-DYYB
     Dosage: 205 MG, EVERY 4 WEEKS
     Route: 042
     Dates: start: 20210723
  24. INFLECTRA [Suspect]
     Active Substance: INFLIXIMAB-DYYB
     Dosage: 205 MG, EVERY 4 WEEKS
     Route: 042
     Dates: start: 20210917
  25. INFLECTRA [Suspect]
     Active Substance: INFLIXIMAB-DYYB
     Dosage: 205 MG, EVERY 4 WEEKS
     Route: 042
     Dates: start: 20211015
  26. INFLECTRA [Suspect]
     Active Substance: INFLIXIMAB-DYYB
     Dosage: 205 MG, EVERY 4 WEEKS
     Route: 042
     Dates: start: 20211209
  27. INFLECTRA [Suspect]
     Active Substance: INFLIXIMAB-DYYB
     Dosage: 205 MG, EVERY 4 WEEKS
     Route: 042
     Dates: start: 20220119
  28. INFLECTRA [Suspect]
     Active Substance: INFLIXIMAB-DYYB
     Dosage: 205 MG, EVERY 8 WEEKS
     Route: 042
     Dates: start: 20220119, end: 20220216
  29. INFLECTRA [Suspect]
     Active Substance: INFLIXIMAB-DYYB
     Dosage: 205 MG, EVERY 8 WEEKS
     Route: 042
     Dates: start: 20220216
  30. INFLECTRA [Suspect]
     Active Substance: INFLIXIMAB-DYYB
     Dosage: 205 MG, EVERY 4 WEEK
     Route: 042
     Dates: start: 20220316
  31. INFLECTRA [Suspect]
     Active Substance: INFLIXIMAB-DYYB
     Dosage: 205 MG, EVERY 4 WEEK
     Route: 042
     Dates: start: 20220920
  32. INFLECTRA [Suspect]
     Active Substance: INFLIXIMAB-DYYB
     Dosage: 205 MG, EVERY 4 WEEK
     Route: 042
     Dates: start: 20221214
  33. INFLECTRA [Suspect]
     Active Substance: INFLIXIMAB-DYYB
     Dosage: 205 MG, EVERY 4 WEEK
     Route: 042
     Dates: start: 20230109
  34. INFLECTRA [Suspect]
     Active Substance: INFLIXIMAB-DYYB
     Dosage: 205 MG, EVERY 4 WEEK
     Route: 042
     Dates: start: 20230206
  35. ACETAMINOPHEN [Concomitant]
     Active Substance: ACETAMINOPHEN
     Indication: Premedication
     Dosage: 650 MG, UNK
     Route: 048
     Dates: start: 20181015, end: 20181015
  36. ACETAMINOPHEN [Concomitant]
     Active Substance: ACETAMINOPHEN
     Dosage: 650 MG, UNK
     Route: 048
     Dates: start: 20190610
  37. ACTONEL [Concomitant]
     Active Substance: RISEDRONATE SODIUM
     Dosage: 150 MG, MONTHLY
     Route: 048
  38. AMOXICILLIN [Concomitant]
     Active Substance: AMOXICILLIN
     Dosage: 500 MG, 3X/DAY
     Route: 048
     Dates: start: 2018
  39. BUDESONIDE [Concomitant]
     Active Substance: BUDESONIDE
     Dosage: 3 MG, FOR 2 WEEKS
  40. CALCIUM [Concomitant]
     Active Substance: CALCIUM
     Dosage: 500 MG, 1X/DAY
     Route: 048
  41. DIPHENHYDRAMINE [Concomitant]
     Active Substance: DIPHENHYDRAMINE
     Indication: Premedication
     Dosage: 25 MG, UNK
     Route: 048
     Dates: start: 20181015
  42. DIPHENHYDRAMINE [Concomitant]
     Active Substance: DIPHENHYDRAMINE
     Dosage: 50 MG, UNK
     Route: 048
     Dates: start: 20190610
  43. ENTOCORT [Concomitant]
     Active Substance: BUDESONIDE
     Dosage: 3 MG, 2X/DAY
     Route: 048
     Dates: start: 2014, end: 2017
  44. FERROUS GLUCONATE [Concomitant]
     Active Substance: FERROUS GLUCONATE
     Dosage: 300 MG, 1X/DAY
     Route: 048
     Dates: start: 1984
  45. HYDROCORTISONE [Concomitant]
     Active Substance: HYDROCORTISONE
     Indication: Premedication
     Dosage: 100 MG, UNK
     Route: 042
     Dates: start: 20181015
  46. HYDROCORTISONE [Concomitant]
     Active Substance: HYDROCORTISONE
     Dosage: 100 MG, UNK
     Route: 042
     Dates: start: 20190610
  47. IBUPROFEN [Concomitant]
     Active Substance: IBUPROFEN
     Indication: Analgesic therapy
     Dosage: 400 MG, 3X/DAY
     Route: 048
  48. METHOTREXATE [Concomitant]
     Active Substance: METHOTREXATE
     Dosage: 7.5 MG, WEEKLY
     Route: 048
     Dates: start: 20181004
  49. METHOTREXATE [Concomitant]
     Active Substance: METHOTREXATE
     Dosage: 7500 MG, WEEKLY
     Route: 048
     Dates: start: 20181004
  50. CHOLESTYRAMINE [Concomitant]
     Active Substance: CHOLESTYRAMINE
     Dosage: 3 DF, DAILY (3 PACKS/DAY)
     Dates: start: 2014
  51. POLYSPORIN [Concomitant]
     Active Substance: BACITRACIN ZINC\POLYMYXIN B SULFATE
     Dosage: UNK
     Dates: start: 20170625
  52. TRAVATAN [Concomitant]
     Active Substance: TRAVOPROST
     Dosage: 1 DROP IN EACH EYE AT NIGHT
     Route: 047
  53. MINERALS\VITAMINS [Concomitant]
     Active Substance: MINERALS\VITAMINS
     Dosage: UNK, 1X/DAY
     Route: 048
  54. VITAMIN B12 [Concomitant]
     Active Substance: CYANOCOBALAMIN
     Dosage: 1200 UG, 1X/DAY
     Route: 048
  55. ZINC [Concomitant]
     Active Substance: ZINC
     Dosage: 5 MG, 1X/DAY
     Route: 048

REACTIONS (35)
  - Pneumonia [Recovered/Resolved]
  - Lower respiratory tract infection [Not Recovered/Not Resolved]
  - Dental operation [Unknown]
  - Lower respiratory tract inflammation [Not Recovered/Not Resolved]
  - Chest discomfort [Not Recovered/Not Resolved]
  - Chronic obstructive pulmonary disease [Unknown]
  - Condition aggravated [Recovered/Resolved]
  - Cystitis [Recovered/Resolved]
  - Ear infection [Recovered/Resolved]
  - Heart rate decreased [Unknown]
  - Pain [Unknown]
  - Rales [Unknown]
  - Skin infection [Recovering/Resolving]
  - Skin mass [Not Recovered/Not Resolved]
  - Skin lesion [Unknown]
  - Laryngitis [Recovered/Resolved]
  - Rhinitis [Unknown]
  - Nasal inflammation [Unknown]
  - Skin fissures [Unknown]
  - Weight decreased [Unknown]
  - Nasopharyngitis [Unknown]
  - Fatigue [Recovering/Resolving]
  - Cough [Recovering/Resolving]
  - Oropharyngeal pain [Not Recovered/Not Resolved]
  - Nasopharyngitis [Recovering/Resolving]
  - Sinusitis [Not Recovered/Not Resolved]
  - Animal bite [Recovering/Resolving]
  - Condition aggravated [Recovered/Resolved]
  - Arthralgia [Unknown]
  - COVID-19 [Unknown]
  - Off label use [Unknown]
  - Off label use [Unknown]
  - Intentional product use issue [Unknown]
  - Incorrect dose administered [Unknown]
  - Inappropriate schedule of product administration [Unknown]

NARRATIVE: CASE EVENT DATE: 20180621
